FAERS Safety Report 5613880-9 (Version None)
Quarter: 2008Q1

REPORT INFORMATION
  Report Type: 
  Country: None (occurrence: None)
  Receive Date: 20080205
  Receipt Date: 20080122
  Transmission Date: 20080703
  Serious: Yes (Other)
  Sender: FDA-Public Use
  Company Number: US-ELI_LILLY_AND_COMPANY-US200801004825

PATIENT
  Sex: Male

DRUGS (1)
  1. CYMBALTA [Suspect]

REACTIONS (1)
  - HEPATOTOXICITY [None]
